FAERS Safety Report 6691814-6 (Version None)
Quarter: 2010Q2

REPORT INFORMATION
  Report Type: 
  Country: None (occurrence: None)
  Receive Date: 20100422
  Receipt Date: 20090827
  Transmission Date: 20101027
  Serious: No
  Sender: FDA-Public Use
  Company Number: US-ASTRAZENECA-2009SE10392

PATIENT
  Age: 77 Year
  Sex: Female
  Weight: 81.6 kg

DRUGS (5)
  1. TOPROL-XL [Suspect]
     Indication: HYPERTENSION
     Route: 048
     Dates: start: 20060101
  2. VITAMINS [Interacting]
  3. VITAMIN D [Concomitant]
  4. HYZAAR [Concomitant]
  5. ADVIL [Concomitant]

REACTIONS (2)
  - POTENTIATING DRUG INTERACTION [None]
  - VAGINAL HAEMORRHAGE [None]
